FAERS Safety Report 20650167 (Version 3)
Quarter: 2022Q2

REPORT INFORMATION
  Report Type: Spontaneous
  Country: US (occurrence: US)
  Receive Date: 20220329
  Receipt Date: 20220624
  Transmission Date: 20220721
  Serious: No
  Sender: FDA-Public Use
  Company Number: US-AVEO ONCOLOGY-2022-AVEO-US000025

PATIENT

DRUGS (4)
  1. FOTIVDA [Suspect]
     Active Substance: TIVOZANIB HYDROCHLORIDE
     Indication: Renal cell carcinoma
     Dosage: 0.89 MG, EVERY OTHER DAY ON DAYS 1-21 EVERY 28 DAYS
     Route: 048
     Dates: start: 20220128, end: 20220516
  2. MUCINEX [Concomitant]
     Active Substance: GUAIFENESIN
  3. CORTISONE [Concomitant]
     Active Substance: CORTISONE
  4. NIFEDIPINE [Concomitant]
     Active Substance: NIFEDIPINE

REACTIONS (6)
  - Nausea [Recovering/Resolving]
  - Somnolence [Unknown]
  - Arthralgia [Unknown]
  - Drug intolerance [Unknown]
  - Off label use [Unknown]
  - Protein total increased [Unknown]
